FAERS Safety Report 20876125 (Version 1)
Quarter: 2022Q2

REPORT INFORMATION
  Report Type: Spontaneous
  Country: US (occurrence: US)
  Receive Date: 20220526
  Receipt Date: 20220526
  Transmission Date: 20220720
  Serious: No
  Sender: FDA-Public Use
  Company Number: US-HISAMITSU PHARMACEUTICAL CO., INC.-2021-NOV-US003798

PATIENT
  Sex: Female

DRUGS (1)
  1. DAYTRANA [Suspect]
     Active Substance: METHYLPHENIDATE
     Indication: Attention deficit hyperactivity disorder
     Dosage: 30 MG/9 HR, UNKNOWN
     Route: 062

REACTIONS (4)
  - Application site erythema [Recovered/Resolved]
  - Adhesive tape use [Recovered/Resolved]
  - Product adhesion issue [Recovered/Resolved]
  - Device adhesion issue [Recovered/Resolved]
